FAERS Safety Report 9361908 (Version 1)
Quarter: 2013Q2

REPORT INFORMATION
  Report Type: Report from Study
  Country: IN (occurrence: IN)
  Receive Date: 20130621
  Receipt Date: 20130621
  Transmission Date: 20140414
  Serious: Yes (Death, Hospitalization)
  Sender: FDA-Public Use
  Company Number: IN-GLAXOSMITHKLINE-B0901562A

PATIENT
  Age: 62 Year
  Sex: Male

DRUGS (1)
  1. SERETIDE (50MCG/250MCG) [Suspect]
     Indication: CHRONIC OBSTRUCTIVE PULMONARY DISEASE
     Route: 065

REACTIONS (2)
  - Myocardial infarction [Fatal]
  - Discomfort [Unknown]
